FAERS Safety Report 16162298 (Version 1)
Quarter: 2019Q2

REPORT INFORMATION
  Report Type: Spontaneous
  Country: TW (occurrence: TW)
  Receive Date: 20190405
  Receipt Date: 20190405
  Transmission Date: 20190711
  Serious: Yes (Other)
  Sender: FDA-Public Use
  Company Number: TW-AMGEN-TWNSP2019050581

PATIENT
  Age: 66 Year
  Sex: Male

DRUGS (1)
  1. PROLIA [Suspect]
     Active Substance: DENOSUMAB
     Indication: OSTEOPOROSIS
     Dosage: 60 MILLIGRAM, Q6MO
     Route: 065

REACTIONS (5)
  - Muscle twitching [Unknown]
  - Micturition urgency [Unknown]
  - Pruritus [Unknown]
  - Gastrointestinal disorder [Unknown]
  - Cholecystectomy [Unknown]

NARRATIVE: CASE EVENT DATE: 2018
